FAERS Safety Report 14140353 (Version 1)
Quarter: 2017Q4

REPORT INFORMATION
  Report Type: Spontaneous
  Country: US (occurrence: US)
  Receive Date: 20171030
  Receipt Date: 20171030
  Transmission Date: 20180321
  Serious: Yes (Other)
  Sender: FDA-Public Use
  Company Number: US-TEVA-769248USA

PATIENT
  Age: 10 Year
  Sex: Female

DRUGS (2)
  1. GUANFACINE. [Suspect]
     Active Substance: GUANFACINE
     Indication: ATTENTION DEFICIT/HYPERACTIVITY DISORDER
     Route: 065
     Dates: start: 20170508, end: 20170509
  2. GUANFACINE. [Suspect]
     Active Substance: GUANFACINE
     Indication: ANXIETY

REACTIONS (14)
  - Somnolence [Unknown]
  - Loss of personal independence in daily activities [Unknown]
  - Pallor [Unknown]
  - Dark circles under eyes [Unknown]
  - Diarrhoea [Unknown]
  - Dyspnoea [Unknown]
  - Tremor [Unknown]
  - Chills [Unknown]
  - Hallucination, visual [Unknown]
  - Malaise [Unknown]
  - Product use in unapproved indication [Unknown]
  - Toxicity to various agents [Unknown]
  - Miosis [Unknown]
  - Repetitive speech [Unknown]

NARRATIVE: CASE EVENT DATE: 20170509
